FAERS Safety Report 7917608-9 (Version None)
Quarter: 2011Q4

REPORT INFORMATION
  Report Type: 
  Country: None (occurrence: None)
  Receive Date: 20111114
  Receipt Date: 20111104
  Transmission Date: 20120403
  Serious: Yes (Hospitalization, Other)
  Sender: FDA-Public Use
  Company Number: 2011SP052042

PATIENT
  Age: 56 Year
  Sex: Female
  Weight: 63 kg

DRUGS (3)
  1. TEMOZOLOMIDE [Suspect]
     Indication: GLIOBLASTOMA
     Dosage: 120 MG;QD;PO, 120 MG;QD;PO
     Route: 048
     Dates: start: 20110304, end: 20110409
  2. TEMOZOLOMIDE [Suspect]
     Indication: GLIOBLASTOMA
     Dosage: IV
     Route: 042
     Dates: start: 20110304
  3. TEMOZOLOMIDE [Suspect]

REACTIONS (3)
  - HAEMATOMA [None]
  - VENOUS THROMBOSIS [None]
  - THROMBOCYTOPENIA [None]
